FAERS Safety Report 6626970-9 (Version None)
Quarter: 2010Q1

REPORT INFORMATION
  Report Type: 
  Country: None (occurrence: None)
  Receive Date: 20100311
  Receipt Date: 20100305
  Transmission Date: 20100710
  Serious: Yes (Life-Threatening, Other)
  Sender: FDA-Public Use
  Company Number: US-CELGENEUS-163-50794-10030794

PATIENT
  Age: 75 Year
  Sex: Male

DRUGS (2)
  1. VIDAZA [Suspect]
     Route: 065
  2. PREDNISONE [Concomitant]
     Indication: DRUG USE FOR UNKNOWN INDICATION
     Route: 065

REACTIONS (3)
  - ATRIAL FIBRILLATION [None]
  - GASTROINTESTINAL HAEMORRHAGE [None]
  - STRONGYLOIDIASIS [None]
